FAERS Safety Report 9370655 (Version 1)
Quarter: 2013Q2

REPORT INFORMATION
  Report Type: Spontaneous
  Country: US (occurrence: US)
  Receive Date: 20130626
  Receipt Date: 20130626
  Transmission Date: 20140414
  Serious: Yes (Other)
  Sender: FDA-Public Use
  Company Number: US-BAXTER-2013BAX023666

PATIENT
  Age: 12 Year
  Sex: Female

DRUGS (6)
  1. NEXTERONE_AMIODARONE, HYDROCHLORIDE 1.80 MG/ML_SOLUTION FOR INFUSION_B [Suspect]
     Indication: VENTRICULAR TACHYCARDIA
     Route: 042
  2. LIDOCAINE HYDROCHLORIDE AND 5% DEXTROSE INJECTION, USP [Suspect]
     Indication: ELECTROCARDIOGRAM QT PROLONGED
     Route: 040
  3. LIDOCAINE HYDROCHLORIDE AND 5% DEXTROSE INJECTION, USP [Suspect]
     Route: 041
  4. MILRINONE LACTATE IN 5% DEXTROSE INJECTION [Concomitant]
     Indication: VENTRICULAR DYSFUNCTION
     Route: 065
  5. DOPAMINE HYDROCHLORIDE AND 5% DEXTROSE INJECTION, USP [Concomitant]
     Indication: VENTRICULAR DYSFUNCTION
     Route: 065
  6. EPINEPHRINE [Concomitant]
     Indication: ENDOTRACHEAL INTUBATION
     Route: 065

REACTIONS (3)
  - Ventricular tachycardia [Unknown]
  - Electrocardiogram QT prolonged [Unknown]
  - Long QT syndrome [Unknown]
